FAERS Safety Report 23482992 (Version 1)
Quarter: 2024Q1

REPORT INFORMATION
  Report Type: Spontaneous
  Country: CN (occurrence: CN)
  Receive Date: 20240205
  Receipt Date: 20240205
  Transmission Date: 20240410
  Serious: Yes (Hospitalization)
  Sender: FDA-Public Use
  Company Number: CN-MYLANLABS-2024M1011246

PATIENT
  Age: 74 Year
  Sex: Female

DRUGS (2)
  1. LYRICA [Suspect]
     Active Substance: PREGABALIN
     Indication: Herpes zoster
     Dosage: 75 MILLIGRAM, BID
     Route: 048
     Dates: start: 20240119, end: 20240123
  2. LYRICA [Suspect]
     Active Substance: PREGABALIN
     Indication: Neuralgia

REACTIONS (3)
  - Dizziness [Recovering/Resolving]
  - Altered state of consciousness [Recovering/Resolving]
  - Urinary incontinence [Unknown]

NARRATIVE: CASE EVENT DATE: 20240121
